FAERS Safety Report 4332394-X (Version None)
Quarter: 2004Q2

REPORT INFORMATION
  Report Type: 
  Country: None (occurrence: None)
  Receive Date: 20040401
  Receipt Date: 20040115
  Transmission Date: 20050107
  Serious: Yes (Death, Life-Threatening, Hospitalization)
  Sender: FDA-Public Use
  Company Number: 2004004369

PATIENT
  Age: 47 Year
  Sex: Male
  Weight: 55 kg

DRUGS (19)
  1. DELAVIRDINE      (DELAVIRDINE) [Suspect]
     Indication: HIV INFECTION
     Dosage: 600 MG (BID), ORAL
     Route: 048
     Dates: start: 20011011, end: 20031216
  2. LANSOPRAZOLE [Concomitant]
  3. SPIRONOLACTONE [Concomitant]
  4. ZIDOVUDINE [Concomitant]
  5. STAVUDINE (STAVUDINE) [Concomitant]
  6. DIDANOSINE (DIDANOSINE) [Concomitant]
  7. QUININE SULFATE (QUININE SULFATE) [Concomitant]
  8. NULYTELY [Concomitant]
  9. SENNA (SENNA) [Concomitant]
  10. HEPARIN [Concomitant]
  11. ACETAMINOPHEN [Concomitant]
  12. LACTULOSE [Concomitant]
  13. CEFTRIAXONE [Concomitant]
  14. ACYCLOVIR [Concomitant]
  15. PHOSPHATES ENEMA [Concomitant]
  16. METOCLOPRAMIDE [Concomitant]
  17. DIHYDROCODEINE (DIHYDROCODEINE) [Concomitant]
  18. TEMAZEPAM [Concomitant]
  19. ONDANSETRON HCL [Concomitant]

REACTIONS (3)
  - GENERAL PHYSICAL HEALTH DETERIORATION [None]
  - HEPATIC ENCEPHALOPATHY [None]
  - RECTAL HAEMORRHAGE [None]
